FAERS Safety Report 6348984-9 (Version None)
Quarter: 2009Q3

REPORT INFORMATION
  Report Type: 
  Country: None (occurrence: None)
  Receive Date: 20090911
  Receipt Date: 20090902
  Transmission Date: 20100115
  Serious: Yes (Hospitalization)
  Sender: FDA-Public Use
  Company Number: US-AVENTIS-200917853US

PATIENT
  Sex: Male

DRUGS (2)
  1. LANTUS [Suspect]
     Dosage: DOSE: UNK
     Route: 058
     Dates: start: 20070101
  2. OPTICLIK (INSULIN INJECTION PEN) [Suspect]
     Dates: start: 20070101

REACTIONS (1)
  - CARDIAC OPERATION [None]
